FAERS Safety Report 9436082 (Version 1)
Quarter: 2013Q3

REPORT INFORMATION
  Report Type: Spontaneous
  Country: IT (occurrence: IT)
  Receive Date: 20130801
  Receipt Date: 20130801
  Transmission Date: 20140515
  Serious: Yes (Life-Threatening)
  Sender: FDA-Public Use
  Company Number: PHHY2013IT063518

PATIENT
  Sex: Male

DRUGS (4)
  1. QUETIAPINE [Suspect]
     Indication: SELF INJURIOUS BEHAVIOUR
     Dates: start: 20130409, end: 20130409
  2. TAVOR (LORAZEPAM) [Concomitant]
     Indication: ANXIETY
     Dosage: 2.5 MG, UNK
  3. LACIREX [Concomitant]
     Indication: HYPERTENSION
     Dosage: 4 MG, UNK
  4. RATACAND [Concomitant]
     Indication: HYPERTENSION
     Dosage: 16 MG, UNK

REACTIONS (2)
  - Drug abuse [Recovered/Resolved]
  - Coma [Recovered/Resolved]
